FAERS Safety Report 12165726 (Version 1)
Quarter: 2016Q1

REPORT INFORMATION
  Report Type: Spontaneous
  Country: US (occurrence: US)
  Receive Date: 20160309
  Receipt Date: 20160309
  Transmission Date: 20160526
  Serious: No
  Sender: FDA-Public Use
  Company Number: US-GLAXOSMITHKLINE-US2016GSK032276

PATIENT
  Age: 54 Year
  Sex: Female

DRUGS (2)
  1. INVOKANA [Suspect]
     Active Substance: CANAGLIFLOZIN
     Indication: PRODUCT USED FOR UNKNOWN INDICATION
     Dosage: UNK UNK, U
  2. TANZEUM [Suspect]
     Active Substance: ALBIGLUTIDE
     Indication: TYPE 2 DIABETES MELLITUS
     Dosage: 50 MG, WE
     Route: 042
     Dates: start: 20160214

REACTIONS (8)
  - Weight decreased [Unknown]
  - Exposure via direct contact [Unknown]
  - Accidental exposure to product [Unknown]
  - Blood glucose decreased [Unknown]
  - Drug dose omission [Unknown]
  - Device leakage [Unknown]
  - Device use error [Unknown]
  - Product preparation error [Unknown]

NARRATIVE: CASE EVENT DATE: 20160214
